FAERS Safety Report 14211159 (Version 1)
Quarter: 2017Q4

REPORT INFORMATION
  Report Type: Report from Study
  Country: US (occurrence: US)
  Receive Date: 20171121
  Receipt Date: 20171121
  Transmission Date: 20180321
  Serious: No
  Sender: FDA-Public Use
  Company Number: US-ALEXION PHARMACEUTICALS INC.-A201712235

PATIENT
  Sex: Female

DRUGS (2)
  1. SOLIRIS [Suspect]
     Active Substance: ECULIZUMAB
     Indication: ATYPICAL HAEMOLYTIC URAEMIC SYNDROME
     Dosage: UNK
     Route: 065
  2. SOLIRIS [Suspect]
     Active Substance: ECULIZUMAB
     Dosage: 1200 MG, UNK
     Route: 065

REACTIONS (14)
  - Basophil count increased [Unknown]
  - Haematocrit decreased [Unknown]
  - Fatigue [Unknown]
  - Red blood cell count decreased [Unknown]
  - White blood cell count decreased [Unknown]
  - Iron deficiency anaemia [Unknown]
  - Oropharyngeal pain [Unknown]
  - Blood urine present [Unknown]
  - Anion gap increased [Unknown]
  - Eosinophil count increased [Unknown]
  - Mean cell haemoglobin decreased [Unknown]
  - Pain [Unknown]
  - Blood sodium increased [Unknown]
  - Monocyte count decreased [Unknown]

NARRATIVE: CASE EVENT DATE: 20170909
